FAERS Safety Report 11934841 (Version 1)
Quarter: 2016Q1

REPORT INFORMATION
  Report Type: Spontaneous
  Country: US (occurrence: None)
  Receive Date: 20160120
  Receipt Date: 20160120
  Transmission Date: 20160526
  Serious: No
  Sender: FDA-Public Use
  Company Number: None

PATIENT
  Age: 46 Year
  Sex: Female
  Weight: 63.5 kg

DRUGS (4)
  1. IBUPROFEN. [Concomitant]
     Active Substance: IBUPROFEN
  2. SYNTHROID [Concomitant]
     Active Substance: LEVOTHYROXINE SODIUM
  3. ESTRODIAL [Concomitant]
  4. METHYLPHENIDATE HYDROCHLORIDE. [Suspect]
     Active Substance: METHYLPHENIDATE HYDROCHLORIDE
     Indication: BRAIN INJURY
     Dosage: 1 PILL 5 TIMES A WEEK TAKEN BY MOUTH
     Dates: start: 20151124, end: 20160118

REACTIONS (9)
  - Drug ineffective [None]
  - Thought blocking [None]
  - Insomnia [None]
  - Fear [None]
  - Disturbance in attention [None]
  - Restlessness [None]
  - Feeling abnormal [None]
  - Product substitution issue [None]
  - Feeding disorder [None]
